FAERS Safety Report 4994349-1 (Version None)
Quarter: 2006Q2

REPORT INFORMATION
  Report Type: 
  Country: None (occurrence: None)
  Receive Date: 20060503
  Receipt Date: 20060414
  Transmission Date: 20061013
  Serious: Yes (Hospitalization)
  Sender: FDA-Public Use
  Company Number: HU200604002736

PATIENT
  Sex: Female

DRUGS (4)
  1. HUMULIN R [Suspect]
     Indication: DIABETES MELLITUS
  2. HP ERGO, BURGUNDY/CLEAR (HUMAPEN ERGO, BURGUNDY/CLEAR) [Concomitant]
  3. HP ERGO, TEAL/CLEAR (HUMAPEN ERGO, TEAL/CLEAR) PEN, REUSABLE [Concomitant]
  4. ACTRAPID HUMAN (INSULIN HUMAN) [Concomitant]

REACTIONS (4)
  - BLOOD PRESSURE FLUCTUATION [None]
  - FEELING ABNORMAL [None]
  - ILL-DEFINED DISORDER [None]
  - PHARMACEUTICAL PRODUCT COMPLAINT [None]
